FAERS Safety Report 24465933 (Version 1)
Quarter: 2024Q4

REPORT INFORMATION
  Report Type: Report from Study
  Country: US (occurrence: US)
  Receive Date: 20241018
  Receipt Date: 20241018
  Transmission Date: 20250114
  Serious: No
  Sender: ROCHE
  Company Number: US-ROCHE-3536022

PATIENT
  Age: 37 Year
  Sex: Male

DRUGS (2)
  1. XOLAIR [Suspect]
     Active Substance: OMALIZUMAB
     Indication: Idiopathic urticaria
     Dosage: ON 27/MAR/2024, HE RECEIVED SECOND DOSE.
     Route: 058
     Dates: start: 20240313
  2. XOLAIR [Suspect]
     Active Substance: OMALIZUMAB

REACTIONS (8)
  - Injection related reaction [Recovered/Resolved]
  - Body temperature decreased [Recovered/Resolved]
  - Cold sweat [Recovered/Resolved]
  - Tremor [Recovered/Resolved]
  - Pruritus [Recovered/Resolved]
  - Hypotension [Unknown]
  - Pain [Recovered/Resolved]
  - Off label use [Unknown]

NARRATIVE: CASE EVENT DATE: 20240313
